FAERS Safety Report 8408648-4 (Version None)
Quarter: 2012Q2

REPORT INFORMATION
  Report Type: 
  Country: None (occurrence: None)
  Receive Date: 20120604
  Receipt Date: 20120131
  Transmission Date: 20120825
  Serious: No
  Sender: FDA-Public Use
  Company Number: US-NOVEN-12US004026

PATIENT
  Sex: Male

DRUGS (6)
  1. DAYTRANA [Suspect]
     Indication: ATTENTION DEFICIT/HYPERACTIVITY DISORDER
     Dosage: UNK
  2. ALLEGRA [Concomitant]
     Indication: HYPERSENSITIVITY
     Dosage: UNK
     Route: 048
  3. SINGULAIR [Concomitant]
     Indication: HYPERSENSITIVITY
  4. DAYTRANA [Suspect]
     Dosage: 10 MG, UNK
  5. DAYTRANA [Suspect]
     Dosage: 15 MG, UNK
  6. ZOLOFT [Concomitant]
     Indication: ANXIETY
     Dosage: 37.5 MG, QD
     Route: 048

REACTIONS (5)
  - OVERDOSE [None]
  - DRUG PRESCRIBING ERROR [None]
  - PRODUCT QUALITY ISSUE [None]
  - ABNORMAL BEHAVIOUR [None]
  - WRONG TECHNIQUE IN DRUG USAGE PROCESS [None]
